FAERS Safety Report 25373704 (Version 1)
Quarter: 2025Q2

REPORT INFORMATION
  Report Type: Report from Study
  Country: US (occurrence: US)
  Receive Date: 20250529
  Receipt Date: 20250529
  Transmission Date: 20250716
  Serious: Yes (Hospitalization)
  Sender: ALEXION PHARMACEUTICALS
  Company Number: US-AstraZeneca-CH-00879567A

PATIENT
  Weight: 60.781 kg

DRUGS (1)
  1. SELUMETINIB [Suspect]
     Active Substance: SELUMETINIB
     Indication: Nervous system neoplasm benign
     Dosage: 40 MILLIGRAM, BID

REACTIONS (1)
  - Depression [Recovering/Resolving]
